FAERS Safety Report 25068887 (Version 2)
Quarter: 2025Q2

REPORT INFORMATION
  Report Type: Spontaneous
  Country: US (occurrence: US)
  Receive Date: 20250312
  Receipt Date: 20250513
  Transmission Date: 20250717
  Serious: Yes (Other)
  Sender: SANOFI AVENTIS
  Company Number: US-SA-2025SA068512

PATIENT
  Sex: Male

DRUGS (6)
  1. AUBAGIO [Suspect]
     Active Substance: TERIFLUNOMIDE
     Indication: Product used for unknown indication
     Dates: start: 2019
  2. VICODIN [Concomitant]
     Active Substance: ACETAMINOPHEN\HYDROCODONE BITARTRATE
  3. PANTOPRAZOLE SODIUM [Concomitant]
     Active Substance: PANTOPRAZOLE SODIUM
  4. TYSABRI [Concomitant]
     Active Substance: NATALIZUMAB
  5. AVONEX [Concomitant]
     Active Substance: INTERFERON BETA-1A
  6. NEURONTIN [Concomitant]
     Active Substance: GABAPENTIN

REACTIONS (5)
  - Hemihypoaesthesia [Unknown]
  - Hemiparaesthesia [Unknown]
  - Migraine [Unknown]
  - Diarrhoea [Unknown]
  - Condition aggravated [Unknown]
